FAERS Safety Report 8828879 (Version 2)
Quarter: 2012Q4

REPORT INFORMATION
  Report Type: Report from Study
  Country: FR (occurrence: FR)
  Receive Date: 20121008
  Receipt Date: 20121026
  Transmission Date: 20130627
  Serious: Yes (Other)
  Sender: FDA-Public Use
  Company Number: FR-CELGENEUS-056-21880-12093298

PATIENT
  Age: 67 None
  Sex: Female
  Weight: 62 kg

DRUGS (5)
  1. REVLIMID [Suspect]
     Indication: MULTIPLE MYELOMA
     Dosage: 10 Milligram
     Route: 048
     Dates: start: 20100505
  2. REVLIMID [Suspect]
     Dosage: 10 Milligram
     Route: 048
     Dates: start: 20120403, end: 20120423
  3. DEXAMETHASONE [Suspect]
     Indication: MULTIPLE MYELOMA
     Route: 048
     Dates: start: 20120303, end: 20120502
  4. KARDEGIC [Concomitant]
     Indication: THROMBOSIS PROPHYLAXIS
     Dosage: 160 Milligram
     Route: 048
     Dates: start: 20100505, end: 20120502
  5. ASPIRINE [Concomitant]
     Indication: PROPHYLAXIS
     Route: 065

REACTIONS (2)
  - Cervical polyp [Not Recovered/Not Resolved]
  - Affective disorder [Recovered/Resolved]
